FAERS Safety Report 6536690-7 (Version None)
Quarter: 2010Q1

REPORT INFORMATION
  Report Type: 
  Country: None (occurrence: None)
  Receive Date: 20100113
  Receipt Date: 20100108
  Transmission Date: 20100710
  Serious: Yes (Other)
  Sender: FDA-Public Use
  Company Number: GB-PFIZER INC-2009306995

PATIENT
  Age: 76 Year
  Sex: Female
  Weight: 70 kg

DRUGS (10)
  1. CHAMPIX [Suspect]
     Indication: SMOKING CESSATION THERAPY
     Dosage: UNK
     Route: 048
     Dates: start: 20091016, end: 20091207
  2. SALBUTAMOL [Concomitant]
     Indication: ASTHMA
     Dosage: 100 UG, UNK
     Route: 055
     Dates: start: 20031231
  3. BENDROFLUAZIDE [Concomitant]
     Indication: HYPERTENSION
     Dosage: 2.5 MG, 1X/DAY
     Route: 048
     Dates: start: 20050111
  4. PERINDOPRIL [Concomitant]
     Indication: HYPERTENSION
     Dosage: 4 MG, 1X/DAY
     Route: 048
     Dates: start: 20070222
  5. ADCAL-D3 [Concomitant]
     Indication: OSTEOPOROSIS
     Dosage: 1 DF, 2X/DAY
     Route: 048
     Dates: start: 20070320
  6. SERETIDE [Concomitant]
     Indication: CHRONIC OBSTRUCTIVE PULMONARY DISEASE
     Dosage: 250 MG, 2 PUFFS, 2X/DAY
     Route: 055
     Dates: start: 20071130
  7. TIOTROPIUM [Concomitant]
     Indication: CHRONIC OBSTRUCTIVE PULMONARY DISEASE
     Dosage: 18 UG, 1X/DAY
     Route: 055
     Dates: start: 20080707
  8. TRAMADOL [Concomitant]
     Indication: PAIN
     Dosage: 50 MG, UNK
     Route: 048
     Dates: start: 20090814
  9. OMEPRAZOLE [Concomitant]
     Indication: HYPERCHLORHYDRIA
     Dosage: 20 MG, 1X/DAY
     Route: 048
     Dates: start: 20090814
  10. CODEINE LINCTUS [Concomitant]
     Indication: COUGH
     Dosage: 10 ML, 3X/DAY
     Route: 048
     Dates: start: 20020725

REACTIONS (1)
  - ALOPECIA [None]
